FAERS Safety Report 16042458 (Version 3)
Quarter: 2019Q2

REPORT INFORMATION
  Report Type: Spontaneous
  Country: US (occurrence: US)
  Receive Date: 20190306
  Receipt Date: 20190427
  Transmission Date: 20190711
  Serious: No
  Sender: FDA-Public Use
  Company Number: US-TEVA-2019-US-1010647

PATIENT
  Sex: Female

DRUGS (9)
  1. DILTIAZEM. [Concomitant]
     Active Substance: DILTIAZEM
     Dosage: 24 HR ER
  2. LOSARTAN POTASSIUM. [Concomitant]
     Active Substance: LOSARTAN POTASSIUM
  3. BUPRENORPHINE TRANSDERMAL PATCH TEVA [Suspect]
     Active Substance: BUPRENORPHINE
     Dosage: 10 MCG/HR FREQUENCY: WEEKLY
     Route: 062
     Dates: start: 20181215, end: 20190201
  4. CLONIDINE HCL [Concomitant]
     Active Substance: CLONIDINE HYDROCHLORIDE
  5. VENLAFAXINE HCL [Concomitant]
     Active Substance: VENLAFAXINE HYDROCHLORIDE
  6. BUMETANIDE 0.5 MG [Concomitant]
     Active Substance: BUMETANIDE
  7. POTASSIUM CLER 10 MEQ [Concomitant]
  8. CARVEDILOL 25MG [Concomitant]
     Active Substance: CARVEDILOL
  9. BUPRENORPHINE TRANSDERMAL PATCH TEVA [Suspect]
     Active Substance: BUPRENORPHINE
     Dosage: 10 MCG/HR FREQUENCY: WEEKLY
     Route: 062
     Dates: start: 20190112

REACTIONS (9)
  - Dry skin [Unknown]
  - Application site pain [Unknown]
  - Skin irritation [Unknown]
  - Pruritus [Unknown]
  - Product substitution issue [Unknown]
  - Drug hypersensitivity [Unknown]
  - Product adhesion issue [Unknown]
  - Scratch [Unknown]
  - Application site erythema [Unknown]
